FAERS Safety Report 21642178 (Version 1)
Quarter: 2022Q4

REPORT INFORMATION
  Report Type: Report from Study
  Country: US (occurrence: US)
  Receive Date: 20221125
  Receipt Date: 20221125
  Transmission Date: 20230113
  Serious: Yes (Other)
  Sender: FDA-Public Use
  Company Number: US-HORIZON THERAPEUTICS-HZN-2022-003448

PATIENT

DRUGS (1)
  1. TEPEZZA [Suspect]
     Active Substance: TEPROTUMUMAB-TRBW
     Indication: Endocrine ophthalmopathy
     Dosage: FIRST INFUSION
     Route: 042
     Dates: start: 20220325

REACTIONS (8)
  - Diabetes mellitus [Unknown]
  - Pain [Recovered/Resolved]
  - Weight decreased [Unknown]
  - Menstruation irregular [Unknown]
  - Intermenstrual bleeding [Unknown]
  - Muscle spasms [Not Recovered/Not Resolved]
  - Tinnitus [Unknown]
  - Headache [Unknown]

NARRATIVE: CASE EVENT DATE: 20220101
